FAERS Safety Report 19824821 (Version 1)
Quarter: 2021Q3

REPORT INFORMATION
  Report Type: Spontaneous
  Country: AU (occurrence: AU)
  Receive Date: 20210914
  Receipt Date: 20210914
  Transmission Date: 20211014
  Serious: Yes (Other)
  Sender: FDA-Public Use
  Company Number: AU-BEH-2021135678

PATIENT
  Sex: Male

DRUGS (1)
  1. HIZENTRA [Suspect]
     Active Substance: HUMAN IMMUNOGLOBULIN G
     Dosage: 4 MILLIGRAM
     Route: 065

REACTIONS (3)
  - Rash [Unknown]
  - Herpes zoster [Unknown]
  - Swelling [Unknown]

NARRATIVE: CASE EVENT DATE: 20210831
